FAERS Safety Report 16470046 (Version 6)
Quarter: 2023Q1

REPORT INFORMATION
  Report Type: Report from Study
  Country: US (occurrence: US)
  Receive Date: 20190624
  Receipt Date: 20230217
  Transmission Date: 20230417
  Serious: Yes (Other)
  Sender: FDA-Public Use
  Company Number: US-BOEHRINGERINGELHEIM-2019-BI-026653

PATIENT
  Age: 47 Year
  Sex: Male
  Weight: 111.6 kg

DRUGS (15)
  1. NINTEDANIB [Suspect]
     Active Substance: NINTEDANIB
     Indication: Systemic scleroderma
     Route: 048
     Dates: start: 20181206
  2. NINTEDANIB [Suspect]
     Active Substance: NINTEDANIB
     Indication: Interstitial lung disease
  3. Nortriptyline(PAMELOR) [Concomitant]
     Indication: Cough
     Route: 048
     Dates: start: 2016
  4. Nortriptyline(PAMELOR) [Concomitant]
     Indication: Pain
     Route: 048
  5. ALBUTEROL [Concomitant]
     Active Substance: ALBUTEROL
     Indication: Product used for unknown indication
     Route: 065
  6. CIALIS [Concomitant]
     Active Substance: TADALAFIL
     Indication: Erectile dysfunction
     Route: 065
     Dates: start: 2008
  7. CIALIS [Concomitant]
     Active Substance: TADALAFIL
     Route: 048
     Dates: start: 2008
  8. Callcept [Concomitant]
     Indication: Scleroderma
     Route: 048
     Dates: start: 20170327
  9. Callcept [Concomitant]
     Route: 048
  10. ipratoropium (ATROVENT) [Concomitant]
     Indication: Asthma
     Dosage: UNIT DOSE:- 0.03%, INHALE 2 SPRAYS IN TO THE NOSE
     Route: 055
     Dates: start: 20181104
  11. VITAMIN D [Concomitant]
     Active Substance: VITAMIN D NOS
     Indication: Supplementation therapy
     Route: 065
  12. CRESTOR [Concomitant]
     Active Substance: ROSUVASTATIN CALCIUM
     Indication: Coronary artery disease
     Dosage: DISPENSED;90 TABLET;REFILLS:3 END DATE; 10-APR-2020
     Route: 048
     Dates: start: 20190411
  13. cetrizine (zyrtec) [Concomitant]
     Indication: Multiple allergies
     Route: 048
  14. NEXIUM [Concomitant]
     Active Substance: ESOMEPRAZOLE MAGNESIUM
     Indication: Product used for unknown indication
     Dosage: WITH DINNER
     Route: 048
  15. FLUTICASONE PROPIONATE (FLOVENT HFA) [Concomitant]
     Indication: Product used for unknown indication
     Dosage: 220 MCG/ACTUATION INHALER, INHALE 1 PUFF INTO THE LUNGS
     Route: 055
     Dates: start: 20190320, end: 20190916

REACTIONS (1)
  - Pulmonary hypertension [Unknown]

NARRATIVE: CASE EVENT DATE: 20190411
